FAERS Safety Report 8128634-1 (Version None)
Quarter: 2011Q4

REPORT INFORMATION
  Report Type: 
  Country: None (occurrence: None)
  Receive Date: 20111227
  Receipt Date: 20111011
  Transmission Date: 20120403
  Serious: No
  Sender: FDA-Public Use
  Company Number: PHHY2011US54210

PATIENT
  Age: 33 Year
  Sex: Male

DRUGS (4)
  1. GILENYA [Suspect]
     Indication: MULTIPLE SCLEROSIS
     Dosage: 0.5 MG, QD, ORAL
     Route: 048
     Dates: start: 20110615, end: 20111009
  2. GILENYA [Suspect]
     Dosage: 0.5 MG, QD, ORAL
     Route: 048
  3. ADVIL (MEFENAMIC ACID) [Concomitant]
  4. ACETAMINOPHEN [Concomitant]

REACTIONS (9)
  - INSOMNIA [None]
  - DYSURIA [None]
  - MUSCULAR WEAKNESS [None]
  - GAIT DISTURBANCE [None]
  - CONTUSION [None]
  - HEADACHE [None]
  - FALL [None]
  - BACK PAIN [None]
  - CONSTIPATION [None]
